FAERS Safety Report 12076755 (Version 2)
Quarter: 2016Q1

REPORT INFORMATION
  Report Type: Report from Study
  Country: GR (occurrence: GR)
  Receive Date: 20160215
  Receipt Date: 20160310
  Transmission Date: 20160526
  Serious: Yes (Hospitalization)
  Sender: FDA-Public Use
  Company Number: GR-ABBVIE-16K-066-1556669-00

PATIENT
  Age: 10 Year
  Sex: Male

DRUGS (2)
  1. HUMIRA [Suspect]
     Active Substance: ADALIMUMAB
     Indication: UVEITIS
     Route: 058
     Dates: start: 20150703, end: 20160115
  2. HUMIRA [Suspect]
     Active Substance: ADALIMUMAB
     Indication: VASCULITIS
     Route: 058
     Dates: start: 20160219

REACTIONS (6)
  - Pyrexia [Recovering/Resolving]
  - Diarrhoea [Recovering/Resolving]
  - Off label use [Not Recovered/Not Resolved]
  - Gait disturbance [Recovering/Resolving]
  - Myositis [Recovering/Resolving]
  - Blood creatine phosphokinase increased [Recovered/Resolved]

NARRATIVE: CASE EVENT DATE: 201601
